FAERS Safety Report 4898512-X (Version None)
Quarter: 2006Q1

REPORT INFORMATION
  Report Type: 
  Country: None (occurrence: None)
  Receive Date: 20060202
  Receipt Date: 20060127
  Transmission Date: 20060701
  Serious: Yes (Death)
  Sender: FDA-Public Use
  Company Number: PHEH2006US01494

PATIENT
  Sex: Male

DRUGS (1)
  1. FORADIL [Suspect]

REACTIONS (1)
  - DEATH [None]
